FAERS Safety Report 5130512-7 (Version None)
Quarter: 2006Q4

REPORT INFORMATION
  Report Type: 
  Country: None (occurrence: None)
  Receive Date: 20061019
  Receipt Date: 20061010
  Transmission Date: 20070319
  Serious: Yes (Hospitalization)
  Sender: FDA-Public Use
  Company Number: FR-GLAXOSMITHKLINE-B0442647A

PATIENT
  Age: 87 Year
  Sex: Female

DRUGS (6)
  1. AUGMENTIN [Suspect]
     Indication: BRONCHITIS
     Route: 048
     Dates: start: 20060626, end: 20060703
  2. FLUDEX [Concomitant]
     Indication: ESSENTIAL HYPERTENSION
     Dosage: 1UNIT PER DAY
     Route: 048
  3. LERCAN [Concomitant]
     Indication: ESSENTIAL HYPERTENSION
     Dosage: 10MG PER DAY
     Route: 048
  4. PREVISCAN [Concomitant]
     Route: 048
  5. LASIX [Concomitant]
     Indication: ESSENTIAL HYPERTENSION
     Dosage: 40MG PER DAY
     Route: 048
  6. TRIATEC [Concomitant]
     Dosage: 10MG PER DAY
     Route: 048

REACTIONS (6)
  - CRYOFIBRINOGENAEMIA [None]
  - CRYOGLOBULINAEMIA [None]
  - LEUKOCYTOCLASTIC VASCULITIS [None]
  - PURPURA [None]
  - TOXIC SKIN ERUPTION [None]
  - VASCULAR PURPURA [None]
